FAERS Safety Report 24359904 (Version 1)
Quarter: 2024Q3

REPORT INFORMATION
  Report Type: Spontaneous
  Country: US (occurrence: US)
  Receive Date: 20240925
  Receipt Date: 20240925
  Transmission Date: 20241016
  Serious: Yes (Other)
  Sender: AMGEN
  Company Number: US-AMGEN-USASP2024186562

PATIENT
  Age: 68 Year
  Sex: Male

DRUGS (6)
  1. RITUXIMAB [Suspect]
     Active Substance: RITUXIMAB
     Indication: Myelitis
     Dosage: 1000 MILLIGRAM
     Route: 065
  2. PREDNISONE [Suspect]
     Active Substance: PREDNISONE
     Indication: Myelitis
     Dosage: UNK
     Route: 048
  3. IBRUTINIB [Concomitant]
     Active Substance: IBRUTINIB
     Indication: Waldenstrom^s macroglobulinaemia
     Dosage: 420 MILLIGRAM, QD FOR 28 DAYS
     Route: 048
  4. VENETOCLAX [Concomitant]
     Active Substance: VENETOCLAX
     Indication: Waldenstrom^s macroglobulinaemia
     Dosage: 100 MILLIGRAM, QD
     Route: 048
  5. VENETOCLAX [Concomitant]
     Active Substance: VENETOCLAX
     Dosage: 400 MILLIGRAM (FROM CYCLE 2 FOR TWENTY-EIGHT DAYS )
     Route: 048
  6. Immunoglobulin [Concomitant]
     Route: 042

REACTIONS (2)
  - Paraneoplastic myelopathy [Recovered/Resolved]
  - Anaemia [Unknown]
